FAERS Safety Report 4768740-2 (Version None)
Quarter: 2005Q3

REPORT INFORMATION
  Report Type: 
  Country: None (occurrence: None)
  Receive Date: 20050914
  Receipt Date: 20050901
  Transmission Date: 20060218
  Serious: Yes (Hospitalization)
  Sender: FDA-Public Use
  Company Number: 20050607279

PATIENT
  Age: 75 Year
  Sex: Male

DRUGS (19)
  1. BLINDED TRIAL MEDICATION [Suspect]
     Indication: CARDIAC FAILURE
     Dates: start: 20050309
  2. CARVEDILOL [Suspect]
     Indication: CARDIAC FAILURE
     Dosage: 6.25MG PER DAY
     Route: 048
     Dates: start: 20050131
  3. METOLAZONE [Suspect]
     Indication: CARDIAC FAILURE
     Dosage: 2.5MG PER DAY
     Route: 048
     Dates: start: 20050303
  4. RAMIPRIL [Suspect]
     Indication: HYPERTENSION
     Dosage: 1.25MG PER DAY
     Route: 048
     Dates: start: 20050330
  5. FUROSEMIDE [Suspect]
     Dosage: 40MG THREE TIMES PER DAY
     Route: 048
     Dates: start: 20050131
  6. NPH INSULIN [Suspect]
     Indication: DIABETES MELLITUS
     Dosage: 15IU PER DAY
     Route: 058
     Dates: start: 20050427
  7. ISOSORBIDE MONONITRATE [Suspect]
     Indication: ANGINA PECTORIS
     Dosage: 60MG PER DAY
     Route: 048
     Dates: start: 20040630
  8. DIGOXIN [Suspect]
     Dosage: .125MG PER DAY
     Route: 048
     Dates: start: 20030911
  9. NITROGLYCERIN [Concomitant]
     Dosage: .4MG AS REQUIRED
     Route: 060
     Dates: start: 20050302
  10. SIMVASTATIN [Concomitant]
     Indication: BLOOD CHOLESTEROL
     Route: 048
     Dates: start: 20020712
  11. CYANOCOBALAMIN [Concomitant]
     Indication: VITAMIN SUPPLEMENTATION
     Dosage: 1000MCG PER DAY
     Route: 048
     Dates: start: 20050623
  12. FOLIC ACID [Concomitant]
     Indication: NUTRITIONAL SUPPORT
     Dosage: 2MG PER DAY
     Route: 048
     Dates: start: 20050623
  13. PYRIDOXINE HCL [Concomitant]
     Indication: NUTRITIONAL SUPPORT
     Dosage: 50MG PER DAY
     Dates: start: 20050623
  14. ASPIRIN [Concomitant]
     Dosage: 325MG TWICE PER DAY
     Dates: start: 19970821
  15. TERAZOSIN HCL [Concomitant]
     Indication: BENIGN PROSTATIC HYPERPLASIA
     Dosage: 10MG PER DAY
     Route: 048
     Dates: start: 20040630
  16. OMEPRAZOLE [Concomitant]
     Dosage: 20MG PER DAY
     Dates: start: 20040409
  17. GLUCAGON [Concomitant]
     Indication: DIABETES MELLITUS
     Dosage: 1MG PER DAY
     Route: 030
     Dates: start: 20050131
  18. FERROUS SULFATE TAB [Concomitant]
     Indication: MINERAL DEFICIENCY
     Dosage: 325MG TWICE PER DAY
     Route: 048
     Dates: start: 20050131
  19. GUAIFENESIN [Concomitant]
     Indication: COUGH
     Dosage: 100MG FOUR TIMES PER DAY
     Route: 048
     Dates: start: 20050101

REACTIONS (3)
  - DIABETES MELLITUS INADEQUATE CONTROL [None]
  - DIZZINESS [None]
  - ORTHOSTATIC HYPOTENSION [None]
